FAERS Safety Report 6821565-6 (Version None)
Quarter: 2010Q3

REPORT INFORMATION
  Report Type: 
  Country: None (occurrence: None)
  Receive Date: 20100707
  Receipt Date: 20100630
  Transmission Date: 20110219
  Serious: Yes (Other)
  Sender: FDA-Public Use
  Company Number: US-AMGEN-QUU419869

PATIENT
  Sex: Male
  Weight: 77.2 kg

DRUGS (4)
  1. NPLATE [Suspect]
     Indication: IDIOPATHIC THROMBOCYTOPENIC PURPURA
     Dates: start: 20091229, end: 20100112
  2. RITUXIMAB [Concomitant]
     Dates: start: 20091224
  3. CORTICOSTEROIDS [Concomitant]
     Dates: start: 20091216
  4. WINRHO [Concomitant]
     Dates: start: 20091229, end: 20100102

REACTIONS (1)
  - DRUG INEFFECTIVE [None]
